FAERS Safety Report 20696474 (Version 1)
Quarter: 2022Q2

REPORT INFORMATION
  Report Type: Spontaneous
  Country: US (occurrence: None)
  Receive Date: 20220408
  Receipt Date: 20220408
  Transmission Date: 20220721
  Serious: Yes (Hospitalization)
  Sender: FDA-Public Use
  Company Number: None

PATIENT
  Sex: Male
  Weight: 80.29 kg

DRUGS (11)
  1. SUNITINIB MALATE [Suspect]
     Active Substance: SUNITINIB MALATE
     Indication: Malignant neoplasm of thymus
     Dosage: FREQUENCY : DAILY;?
     Route: 048
     Dates: start: 202110
  2. ATORVASTATIN CALCIUM [Concomitant]
  3. CLONIDINE [Concomitant]
  4. MEMANTINE [Concomitant]
  5. NIFEDIPINE [Concomitant]
  6. PANTOPRAZOLE SODIUM [Concomitant]
  7. TRIAMETERENE-HCTZ [Concomitant]
  8. AMOXICILLIN-POT CLAVULANATE [Concomitant]
  9. ELIQUIS [Concomitant]
  10. FLUTICASONE PROPIONATE [Concomitant]
  11. LORATADINE [Concomitant]

REACTIONS (3)
  - Haemoglobin decreased [None]
  - Thrombosis [None]
  - Scan abnormal [None]
